FAERS Safety Report 19153477 (Version 1)
Quarter: 2021Q2

REPORT INFORMATION
  Report Type: Spontaneous
  Country: FR (occurrence: FR)
  Receive Date: 20210419
  Receipt Date: 20210419
  Transmission Date: 20210717
  Serious: Yes (Hospitalization, Other)
  Sender: FDA-Public Use
  Company Number: FR-TEVA-2021-FR-1902255

PATIENT
  Age: 6 Decade
  Sex: Female

DRUGS (4)
  1. TRASTUZUMAB. [Suspect]
     Active Substance: TRASTUZUMAB
     Indication: BREAST CANCER METASTATIC
     Dosage: RECEIVED 7 CYCLES FOLLOWED BY MAINTENANCE; PHASE III BOLERO 1 THERAPEUTIC TRIAL
     Route: 065
  2. TRASTUZUMAB. [Suspect]
     Active Substance: TRASTUZUMAB
     Indication: TARGETED CANCER THERAPY
  3. PACLITAXEL. [Concomitant]
     Active Substance: PACLITAXEL
     Indication: BREAST CANCER METASTATIC
     Dosage: 7 CYCLES
     Route: 065
  4. EVEROLIMUS. [Suspect]
     Active Substance: EVEROLIMUS
     Indication: BREAST CANCER METASTATIC
     Dosage: RECEIVED 7 CYCLES FOLLOWED BY MAINTENANCE; PHASE III BOLERO 1 THERAPEUTIC TRIAL
     Route: 065

REACTIONS (4)
  - Endometriosis [Recovered/Resolved]
  - Splenic cyst [Recovered/Resolved]
  - Left ventricular dysfunction [Unknown]
  - Rebound effect [Unknown]
